FAERS Safety Report 5285556-1 (Version None)
Quarter: 2007Q1

REPORT INFORMATION
  Report Type: 
  Country: None (occurrence: None)
  Receive Date: 20061229
  Receipt Date: 20061025
  Transmission Date: 20070707
  Serious: Yes (Other)
  Sender: FDA-Public Use
  Company Number: 2006UW20584

PATIENT
  Age: 71 Year
  Sex: Female
  Weight: 79.378 kg

DRUGS (8)
  1. CRESTOR [Suspect]
     Indication: HYPERCHOLESTEROLAEMIA
     Dosage: 20 MG PO
     Route: 048
     Dates: start: 20060901, end: 20061001
  2. PHENOBARBITAL TAB [Concomitant]
  3. THYROID TAB [Concomitant]
  4. GLUCOSAMINE W/CHONDROITIN [Concomitant]
  5. FISH OIL [Concomitant]
  6. VITAMIN D [Concomitant]
  7. ASPIRIN [Concomitant]
  8. VITAMIN CAP [Concomitant]

REACTIONS (2)
  - EYE ROLLING [None]
  - FALL [None]
